FAERS Safety Report 4939735-0 (Version None)
Quarter: 2006Q1

REPORT INFORMATION
  Report Type: 
  Country: None (occurrence: None)
  Receive Date: 20060307
  Receipt Date: 20060222
  Transmission Date: 20060701
  Serious: Yes (Other)
  Sender: FDA-Public Use
  Company Number: 2006027021

PATIENT
  Age: 55 Year
  Sex: Male
  Weight: 81.6475 kg

DRUGS (2)
  1. VIAGRA [Suspect]
     Indication: ERECTILE DYSFUNCTION
     Dosage: 50 MG, ORAL
     Route: 048
     Dates: start: 20050101
  2. CRESTOR [Concomitant]

REACTIONS (7)
  - DRUG EFFECT DECREASED [None]
  - DYSURIA [None]
  - HERNIA [None]
  - PAIN [None]
  - PROSTATIC OPERATION [None]
  - SCAR [None]
  - URINARY TRACT OBSTRUCTION [None]
